FAERS Safety Report 4302391-9 (Version None)
Quarter: 2004Q1

REPORT INFORMATION
  Report Type: 
  Country: None (occurrence: None)
  Receive Date: 20040126
  Receipt Date: 20031013
  Transmission Date: 20041129
  Serious: No
  Sender: FDA-Public Use
  Company Number: USA031049703

PATIENT
  Age: 9 Year
  Sex: Male
  Weight: 31 kg

DRUGS (4)
  1. STRATTERA [Suspect]
     Indication: ATTENTION DEFICIT/HYPERACTIVITY DISORDER
     Dosage: 40 MG/ IN THE MORNING
     Dates: start: 20031006
  2. ZYRTEC [Concomitant]
  3. DETROL LA (TOLTERODINE L-TARTRATE) [Concomitant]
  4. ALBUTEROL [Concomitant]

REACTIONS (7)
  - ANOREXIA [None]
  - BODY TEMPERATURE DECREASED [None]
  - CHILLS [None]
  - DIZZINESS [None]
  - EMOTIONAL DISTRESS [None]
  - FEELING ABNORMAL [None]
  - MEMORY IMPAIRMENT [None]
